FAERS Safety Report 6262172-6 (Version None)
Quarter: 2009Q3

REPORT INFORMATION
  Report Type: 
  Country: None (occurrence: None)
  Receive Date: 20090708
  Receipt Date: 20090708
  Transmission Date: 20100115
  Serious: No
  Sender: FDA-Public Use
  Company Number: None

PATIENT
  Sex: Female
  Weight: 81.6475 kg

DRUGS (1)
  1. ASPIRIN [Suspect]
     Dosage: 325 MG 1 X DAY
     Dates: start: 20090301, end: 20090601

REACTIONS (2)
  - CARDIAC DISORDER [None]
  - DYSPEPSIA [None]
